FAERS Safety Report 10424952 (Version 13)
Quarter: 2015Q3

REPORT INFORMATION
  Report Type: Report from Study
  Country: US (occurrence: US)
  Receive Date: 20140902
  Receipt Date: 20150727
  Transmission Date: 20151125
  Serious: Yes (Hospitalization, Disabling, Other)
  Sender: FDA-Public Use
  Company Number: US-SA-2014SA057573

PATIENT
  Age: 42 Year
  Sex: Female

DRUGS (8)
  1. AUBAGIO [Suspect]
     Active Substance: TERIFLUNOMIDE
     Indication: MULTIPLE SCLEROSIS
     Route: 048
  2. AUBAGIO [Suspect]
     Active Substance: TERIFLUNOMIDE
     Indication: MULTIPLE SCLEROSIS
     Route: 048
     Dates: start: 20140427, end: 20140512
  3. AUBAGIO [Suspect]
     Active Substance: TERIFLUNOMIDE
     Indication: MULTIPLE SCLEROSIS
     Route: 048
     Dates: start: 20140516, end: 20150131
  4. AUBAGIO [Suspect]
     Active Substance: TERIFLUNOMIDE
     Indication: MULTIPLE SCLEROSIS
     Route: 048
     Dates: start: 20150201
  5. CELEBREX [Concomitant]
     Active Substance: CELECOXIB
     Dates: start: 201311
  6. AUBAGIO [Suspect]
     Active Substance: TERIFLUNOMIDE
     Indication: MULTIPLE SCLEROSIS
     Route: 048
     Dates: start: 20140412, end: 20140420
  7. REBIF [Concomitant]
     Active Substance: INTERFERON BETA-1A
  8. XOPENEX [Concomitant]
     Active Substance: LEVALBUTEROL HYDROCHLORIDE

REACTIONS (29)
  - Vomiting [Recovering/Resolving]
  - Nausea [Recovering/Resolving]
  - Bronchitis [Unknown]
  - Respiratory disorder [Unknown]
  - Cardiac disorder [Unknown]
  - Abdominal pain [Recovering/Resolving]
  - Pain in extremity [Not Recovered/Not Resolved]
  - Limb injury [Unknown]
  - Unevaluable event [Unknown]
  - Multiple sclerosis relapse [Unknown]
  - Implantable defibrillator replacement [Unknown]
  - Diarrhoea [Recovered/Resolved]
  - Pain [Recovering/Resolving]
  - Respiratory disorder [Unknown]
  - Headache [Recovering/Resolving]
  - Influenza [Unknown]
  - Alopecia [Recovering/Resolving]
  - Dyspnoea [Unknown]
  - Muscular weakness [Unknown]
  - Burning sensation [Not Recovered/Not Resolved]
  - Pyrexia [Recovered/Resolved]
  - Gastroenteritis viral [Recovering/Resolving]
  - Cardiac operation [Unknown]
  - Hepatic enzyme increased [Unknown]
  - Therapeutic response unexpected [Unknown]
  - Pyrexia [Unknown]
  - Arrhythmia [Unknown]
  - Fatigue [Recovering/Resolving]
  - Abdominal discomfort [Not Recovered/Not Resolved]

NARRATIVE: CASE EVENT DATE: 201404
